FAERS Safety Report 9604225 (Version 1)
Quarter: 2013Q2

REPORT INFORMATION
  Report Type: Spontaneous
  Country: US (occurrence: None)
  Receive Date: 20130516
  Receipt Date: 20130516
  Transmission Date: 20140414
  Serious: Yes (Other)
  Sender: FDA-Public Use
  Company Number: 37714

PATIENT
  Age: 71 Year
  Sex: Female

DRUGS (8)
  1. GLASSIA [Suspect]
     Route: 042
     Dates: start: 20111122
  2. NITROGLYCERIN 0.4MG [Concomitant]
  3. POTASSIUM CHLORIDE [Concomitant]
  4. ALBUTEROL 2.5MG/3ML NEBULIZER [Concomitant]
  5. LASIX [Concomitant]
  6. LEVOTHYROXINE SODIUM [Concomitant]
  7. LISINOPRIL [Concomitant]
  8. PROTON PUMP INHIBITORS [Concomitant]

REACTIONS (5)
  - Malaise [None]
  - Weight decreased [None]
  - Oesophageal disorder [None]
  - Oesophagitis [None]
  - Pain [None]
